FAERS Safety Report 7609939-7 (Version None)
Quarter: 2011Q3

REPORT INFORMATION
  Report Type: 
  Country: None (occurrence: None)
  Receive Date: 20110714
  Receipt Date: 20100802
  Transmission Date: 20111222
  Serious: Yes (Death)
  Sender: FDA-Public Use
  Company Number: US-TYCO HEALTHCARE/MALLINCKRODT-T201001722

PATIENT
  Age: 25 Year
  Sex: Female
  Weight: 87.075 kg

DRUGS (3)
  1. ALPRAZOLAM [Suspect]
     Dosage: UNK
  2. METHADOSE [Suspect]
     Dosage: UNK
  3. OXYCODONE HCL [Suspect]
     Dosage: UNK

REACTIONS (4)
  - MULTIPLE DRUG OVERDOSE ACCIDENTAL [None]
  - TOXICITY TO VARIOUS AGENTS [None]
  - PULMONARY OEDEMA [None]
  - PULMONARY CONGESTION [None]
